FAERS Safety Report 7669635-7 (Version None)
Quarter: 2011Q3

REPORT INFORMATION
  Report Type: 
  Country: None (occurrence: None)
  Receive Date: 20110808
  Receipt Date: 20110726
  Transmission Date: 20111222
  Serious: Yes (Other)
  Sender: FDA-Public Use
  Company Number: PHHY2011BR68250

PATIENT
  Sex: Male

DRUGS (5)
  1. EXFORGE HCT [Suspect]
     Dosage: 1 DF, DAILY (VALSARTAN 160 MG/ HYDROCHLOROTHIAZIDE 5 MG/ AMLODIPINE 12.5 MG)
     Dates: start: 20110301
  2. EXFORGE HCT [Suspect]
     Indication: HYPERTENSION
     Dosage: 1 DF, DAILY (VALSARTAN 160 MG/ HYDROCHLOROTHIAZIDE 5 MG/ AMLODIPINE 12.5 MG)
  3. TRENTAL [Concomitant]
     Indication: LABYRINTHITIS
     Dosage: 2 DF, DAY
     Route: 048
  4. CLONAZEPAM [Concomitant]
     Indication: INSOMNIA
     Dosage: 8 DROP, AT NIGHT
     Route: 048
  5. EXFORGE HCT [Suspect]
     Dosage: 1 BIG TABLET ON 1 DAY AND 1 LITTLE TABLET ON THE OTHER DAY

REACTIONS (3)
  - WEIGHT DECREASED [None]
  - ISCHAEMIA [None]
  - BLOOD PRESSURE DECREASED [None]
